FAERS Safety Report 6030622-6 (Version None)
Quarter: 2008Q4

REPORT INFORMATION
  Report Type: 
  Country: None (occurrence: None)
  Receive Date: 20081222
  Receipt Date: 20080911
  Transmission Date: 20090506
  Serious: No
  Sender: FDA-Public Use
  Company Number: US-WYE-H05967208

PATIENT
  Age: 55 Year
  Sex: Female

DRUGS (10)
  1. PRISTIQ [Suspect]
     Indication: DEPRESSION
     Dosage: 50 MG 1X PER 1 DAY, ORAL
     Route: 048
     Dates: start: 20080801
  2. LAMICTAL [Concomitant]
  3. CLONAZEPAM [Concomitant]
  4. PRAVASTATIN [Concomitant]
  5. LEVOXYL [Concomitant]
  6. HYDROCHLOROTHIAZIDE WITH TRIAMTERENE (HYDROCHLOROTHIAZIDE/TRIAMTERENE) [Concomitant]
  7. PREMARIN [Concomitant]
  8. MEDROXYPROGESTERONE [Concomitant]
  9. FISH OIL, HYDROGENATED (FISH OIL, HYDROGENATED) [Concomitant]
  10. MULTIVITAMINS (ASCORBIC ACID/ERGOCALCIFEROL/FOLIC ACID/NICOTINAMIDE/PA [Concomitant]

REACTIONS (8)
  - CLONUS [None]
  - CONDITION AGGRAVATED [None]
  - CONSTIPATION [None]
  - DRY MOUTH [None]
  - ESSENTIAL TREMOR [None]
  - HEADACHE [None]
  - LIBIDO DECREASED [None]
  - VISION BLURRED [None]
